FAERS Safety Report 6368713-2 (Version None)
Quarter: 2009Q3

REPORT INFORMATION
  Report Type: 
  Country: None (occurrence: None)
  Receive Date: 20090917
  Receipt Date: 20090917
  Transmission Date: 20100115
  Serious: Yes (Disabling)
  Sender: FDA-Public Use
  Company Number: None

PATIENT
  Age: 63 Year
  Sex: Female

DRUGS (1)
  1. WARFARIN SODIUM [Suspect]

REACTIONS (3)
  - INTERNATIONAL NORMALISED RATIO INCREASED [None]
  - PAIN IN EXTREMITY [None]
  - URINARY TRACT INFECTION [None]
